FAERS Safety Report 5209432-5 (Version None)
Quarter: 2006Q4

REPORT INFORMATION
  Report Type: 
  Country: None (occurrence: None)
  Receive Date: 20061101
  Receipt Date: 20060616
  Transmission Date: 20070319
  Serious: No
  Sender: FDA-Public Use
  Company Number: 2006PV015832

PATIENT
  Sex: Female

DRUGS (1)
  1. SYMLIN [Suspect]
     Indication: DIABETES MELLITUS INSULIN-DEPENDENT
     Dosage: SC
     Route: 058
     Dates: start: 20060501

REACTIONS (6)
  - BLOOD GLUCOSE DECREASED [None]
  - BLOOD GLUCOSE INCREASED [None]
  - INCREASED APPETITE [None]
  - INJECTION SITE BRUISING [None]
  - UNEVALUABLE EVENT [None]
  - WEIGHT DECREASED [None]
